FAERS Safety Report 18198804 (Version 2)
Quarter: 2020Q4

REPORT INFORMATION
  Report Type: Spontaneous
  Country: US (occurrence: US)
  Receive Date: 20200826
  Receipt Date: 20201113
  Transmission Date: 20210113
  Serious: Yes (Other)
  Sender: FDA-Public Use
  Company Number: US-ASTRAZENECA-2020SF04918

PATIENT
  Age: 22586 Day
  Sex: Female

DRUGS (94)
  1. TRIAMTERENE AND HYDROCHLOROTHIAZIDE [Concomitant]
     Active Substance: HYDROCHLOROTHIAZIDE\TRIAMTERENE
  2. LEVEMIR [Concomitant]
     Active Substance: INSULIN DETEMIR
  3. PREVNAR [Concomitant]
     Active Substance: PNEUMOCOCCAL 7-VALENT CONJUGATE VACCINE (DIPHTHERIA CRM197 PROTEIN)
  4. IBUPROFEN. [Concomitant]
     Active Substance: IBUPROFEN
  5. ERYTHROMYCIN. [Concomitant]
     Active Substance: ERYTHROMYCIN
  6. GEODON [Concomitant]
     Active Substance: ZIPRASIDONE HYDROCHLORIDE\ZIPRASIDONE MESYLATE
  7. ANTARA [Concomitant]
     Active Substance: FENOFIBRATE
  8. NEXIUM [Suspect]
     Active Substance: ESOMEPRAZOLE MAGNESIUM
     Indication: ABDOMINAL PAIN UPPER
     Dosage: 40.0MG UNKNOWN
     Route: 048
  9. OMEPRAZOLE. [Suspect]
     Active Substance: OMEPRAZOLE
     Indication: ABDOMINAL PAIN UPPER
     Dosage: GENERIC UNKNOWN
     Route: 065
  10. VICTOZA [Concomitant]
     Active Substance: LIRAGLUTIDE
  11. ACETAMINOPHEN /COD [Concomitant]
  12. VITAMIN D2 [Concomitant]
     Active Substance: ERGOCALCIFEROL
  13. POLYETHYLENE GLYCOL [Concomitant]
     Active Substance: POLYETHYLENE GLYCOLS
  14. PROMETHAZINE [Concomitant]
     Active Substance: PROMETHAZINE HYDROCHLORIDE
  15. PATADAY [Concomitant]
     Active Substance: OLOPATADINE HYDROCHLORIDE
  16. ALPRAZOLAM. [Concomitant]
     Active Substance: ALPRAZOLAM
  17. HYDROCODONE/IBUPROF [Concomitant]
  18. PERPHENAZINE. [Concomitant]
     Active Substance: PERPHENAZINE
  19. LOTEMAX [Concomitant]
     Active Substance: LOTEPREDNOL ETABONATE
  20. SIMVASTATIN. [Concomitant]
     Active Substance: SIMVASTATIN
  21. CARISOPRODOL. [Concomitant]
     Active Substance: CARISOPRODOL
  22. BENZONATATE. [Concomitant]
     Active Substance: BENZONATATE
  23. EFFEXOR [Concomitant]
     Active Substance: VENLAFAXINE HYDROCHLORIDE
  24. SEROQUEL [Concomitant]
     Active Substance: QUETIAPINE FUMARATE
  25. COMBIVENT [Concomitant]
     Active Substance: ALBUTEROL SULFATE\IPRATROPIUM BROMIDE
  26. OMEPRAZOLE. [Suspect]
     Active Substance: OMEPRAZOLE
     Indication: ABDOMINAL PAIN UPPER
     Dosage: GENERIC40.0MG UNKNOWN
     Route: 048
     Dates: start: 20151009
  27. TRIAMTERENE. [Concomitant]
     Active Substance: TRIAMTERENE
  28. REGLAN [Concomitant]
     Active Substance: METOCLOPRAMIDE HYDROCHLORIDE
  29. CRESTOR [Concomitant]
     Active Substance: ROSUVASTATIN CALCIUM
  30. ESCITALOPRAM OXALATE. [Concomitant]
     Active Substance: ESCITALOPRAM OXALATE
  31. PROAIR HFA [Concomitant]
     Active Substance: ALBUTEROL SULFATE
  32. POTASSIUM CHLORIDE. [Concomitant]
     Active Substance: POTASSIUM CHLORIDE
  33. CEFDINIR. [Concomitant]
     Active Substance: CEFDINIR
  34. RISEDRONATE [Concomitant]
     Active Substance: RISEDRONATE SODIUM
  35. DOCQLACE [Concomitant]
     Active Substance: DOCUSATE SODIUM
  36. ABILIFY [Concomitant]
     Active Substance: ARIPIPRAZOLE
  37. DICYCLOMINE [Concomitant]
     Active Substance: DICYCLOMINE HYDROCHLORIDE
  38. METFORMIN [Concomitant]
     Active Substance: METFORMIN HYDROCHLORIDE
  39. CLINDAMYCIN. [Concomitant]
     Active Substance: CLINDAMYCIN
  40. AMITRIPTYLINE [Concomitant]
     Active Substance: AMITRIPTYLINE
  41. JANUVIA [Concomitant]
     Active Substance: SITAGLIPTIN PHOSPHATE
  42. GABAPENTIN. [Concomitant]
     Active Substance: GABAPENTIN
  43. VYTORIN [Concomitant]
     Active Substance: EZETIMIBE\SIMVASTATIN
  44. LISINOPRIL. [Concomitant]
     Active Substance: LISINOPRIL
  45. METHOCARBAMOL. [Concomitant]
     Active Substance: METHOCARBAMOL
  46. CYCLOBENZAPRINE. [Concomitant]
     Active Substance: CYCLOBENZAPRINE
  47. AMOX-CLAV [Concomitant]
     Active Substance: AMOXICILLIN\CLAVULANATE POTASSIUM
  48. FLUVIRIN NOS [Concomitant]
     Active Substance: INFLUENZA VIRUS VACCINE
  49. CLOTRIMAZOLE AND BETAMETHASONE DIPROPIONATE [Concomitant]
     Active Substance: BETAMETHASONE\BETAMETHASONE DIPROPIONATE\CLOTRIMAZOLE
  50. BYDUREON [Concomitant]
     Active Substance: EXENATIDE
  51. BUPROPION. [Concomitant]
     Active Substance: BUPROPION
  52. CHERATUSSIN [Concomitant]
     Active Substance: AMMONIUM CHLORIDE\DEXTROMETHORPHAN\SODIUM CITRATE
  53. TRILIPIX [Concomitant]
     Active Substance: FENOFIBRIC ACID
  54. TYLENOL [Concomitant]
     Active Substance: ACETAMINOPHEN
  55. NEXIUM [Suspect]
     Active Substance: ESOMEPRAZOLE MAGNESIUM
     Indication: ABDOMINAL PAIN UPPER
     Dosage: GENERIC40.0MG UNKNOWN
     Route: 048
     Dates: start: 20170516
  56. HUMALOG [Concomitant]
     Active Substance: INSULIN LISPRO
  57. MUCINEX DM [Concomitant]
     Active Substance: DEXTROMETHORPHAN HYDROBROMIDE\GUAIFENESIN
  58. HYDROCODONE/ACETAMINOPHEN [Concomitant]
     Active Substance: ACETAMINOPHEN\HYDROCODONE
  59. STRATTERA [Concomitant]
     Active Substance: ATOMOXETINE HYDROCHLORIDE
  60. ADVAIR DISKUS [Concomitant]
     Active Substance: FLUTICASONE PROPIONATE\SALMETEROL XINAFOATE
  61. TUSSIONEX PENNKINETIC [Concomitant]
     Active Substance: CHLORPHENIRAMINE\HYDROCODONE
  62. CLONIDINE. [Concomitant]
     Active Substance: CLONIDINE
  63. TIZANIDINE. [Concomitant]
     Active Substance: TIZANIDINE
  64. LYRICA [Concomitant]
     Active Substance: PREGABALIN
  65. DULOXETINE. [Concomitant]
     Active Substance: DULOXETINE
  66. OSELTAMIVIR [Concomitant]
     Active Substance: OSELTAMIVIR
  67. CYMBALTA [Concomitant]
     Active Substance: DULOXETINE HYDROCHLORIDE
  68. PENICILLIN VK [Concomitant]
     Active Substance: PENICILLIN V POTASSIUM
  69. PREDNISONE. [Concomitant]
     Active Substance: PREDNISONE
  70. XOPENEX HFA [Concomitant]
     Active Substance: LEVALBUTEROL TARTRATE
  71. NEXIUM [Suspect]
     Active Substance: ESOMEPRAZOLE MAGNESIUM
     Indication: ABDOMINAL PAIN UPPER
     Route: 048
     Dates: start: 2004, end: 2019
  72. OMEPRAZOLE. [Suspect]
     Active Substance: OMEPRAZOLE
     Indication: ABDOMINAL PAIN UPPER
     Dosage: GENERIC40.0MG UNKNOWN
     Route: 048
     Dates: start: 2015, end: 2018
  73. LEVOTHYROXINE SODIUM. [Concomitant]
     Active Substance: LEVOTHYROXINE SODIUM
  74. NAPROXEN. [Concomitant]
     Active Substance: NAPROXEN
  75. CIPRODEX [Concomitant]
     Active Substance: CIPROFLOXACIN HYDROCHLORIDE\DEXAMETHASONE
  76. MISOPROSTOL. [Concomitant]
     Active Substance: MISOPROSTOL
  77. MAGNESIUM OXIDE. [Concomitant]
     Active Substance: MAGNESIUM OXIDE
  78. PRAZOSIN. [Concomitant]
     Active Substance: PRAZOSIN
  79. GENERLAC [Concomitant]
     Active Substance: LACTULOSE
  80. CARAFATE [Concomitant]
     Active Substance: SUCRALFATE
  81. DOXYCYCLINE HYCLATE. [Concomitant]
     Active Substance: DOXYCYCLINE HYCLATE
  82. ONDANSETRON [Concomitant]
     Active Substance: ONDANSETRON
  83. RESTASIS [Concomitant]
     Active Substance: CYCLOSPORINE
  84. CHANTIX [Concomitant]
     Active Substance: VARENICLINE TARTRATE
  85. AMOXICILLIN. [Concomitant]
     Active Substance: AMOXICILLIN
  86. MONTELUKAST [Concomitant]
     Active Substance: MONTELUKAST SODIUM
  87. LEVOTHYROXINE. [Concomitant]
     Active Substance: LEVOTHYROXINE
  88. SULFA [Concomitant]
     Active Substance: UNSPECIFIED INGREDIENT
  89. FLUCONAZOLE. [Concomitant]
     Active Substance: FLUCONAZOLE
  90. NOVOLOG [Concomitant]
     Active Substance: INSULIN ASPART
  91. METHYLPREDNISOLONE. [Concomitant]
     Active Substance: METHYLPREDNISOLONE
  92. CHLORHEXIDINE [Concomitant]
     Active Substance: CHLORHEXIDINE
  93. GLUCAGON. [Concomitant]
     Active Substance: GLUCAGON
  94. HYDROMET [Concomitant]
     Active Substance: HOMATROPINE METHYLBROMIDE\HYDROCODONE BITARTRATE

REACTIONS (1)
  - Chronic kidney disease [Not Recovered/Not Resolved]

NARRATIVE: CASE EVENT DATE: 20191024
